FAERS Safety Report 8923257 (Version 3)
Quarter: 2013Q2

REPORT INFORMATION
  Report Type: Spontaneous
  Country: DK (occurrence: DK)
  Receive Date: 20121124
  Receipt Date: 20130425
  Transmission Date: 20140414
  Serious: Yes (Other)
  Sender: FDA-Public Use
  Company Number: PHHY2012DK106700

PATIENT
  Age: 38 Year
  Sex: Female

DRUGS (5)
  1. FLUCONAZOLE [Suspect]
     Indication: VULVOVAGINAL CANDIDIASIS
     Dosage: 150 MG, PERIODICALLY
     Route: 048
  2. FLUCONAZOLE [Suspect]
     Dosage: 150 MG, UNK
     Route: 048
  3. INTERFERON [Concomitant]
     Indication: MULTIPLE SCLEROSIS
  4. DEXIBUPROFEN [Concomitant]
     Indication: INFLUENZA LIKE ILLNESS
     Dosage: 400 MG, UNK
     Route: 048
  5. DOXYCYCLINE [Concomitant]
     Indication: DRUG ERUPTION

REACTIONS (12)
  - Drug eruption [Unknown]
  - Skin oedema [Unknown]
  - Erythema [Unknown]
  - Skin lesion [Unknown]
  - Skin atrophy [Unknown]
  - Post inflammatory pigmentation change [Unknown]
  - Paraesthesia [Unknown]
  - Pruritus [Unknown]
  - Inflammation [Unknown]
  - Scab [Unknown]
  - Oral disorder [Unknown]
  - Drug administration error [Unknown]
